FAERS Safety Report 5786273-1 (Version None)
Quarter: 2008Q2

REPORT INFORMATION
  Report Type: 
  Country: None (occurrence: None)
  Receive Date: 20080624
  Receipt Date: 20070703
  Transmission Date: 20081010
  Serious: No
  Sender: FDA-Public Use
  Company Number: US-ASTRAZENECA-2007UW15601

PATIENT
  Age: 51 Year
  Sex: Female
  Weight: 65.8 kg

DRUGS (3)
  1. PULMICORT-100 [Suspect]
     Indication: HYPERSENSITIVITY
     Route: 055
  2. PULMICORT-100 [Suspect]
     Indication: ASTHMA
     Route: 055
  3. ALPHAGAN [Concomitant]
     Dosage: 1 TSP

REACTIONS (4)
  - ANXIETY [None]
  - INSOMNIA [None]
  - OCULAR HYPERAEMIA [None]
  - TREMOR [None]
